FAERS Safety Report 9948276 (Version 1)
Quarter: 2014Q1

REPORT INFORMATION
  Report Type: Report from Study
  Country: US (occurrence: US)
  Receive Date: 20140303
  Receipt Date: 20140303
  Transmission Date: 20141002
  Serious: No
  Sender: FDA-Public Use
  Company Number: US-ABBVIE-13P-163-1060995-00

PATIENT
  Age: 37 Year
  Sex: Male

DRUGS (7)
  1. HUMIRA [Suspect]
     Indication: CROHN^S DISEASE
     Route: 058
     Dates: start: 201203, end: 201207
  2. CLONAZEPAM [Concomitant]
     Indication: SUPRAVENTRICULAR TACHYCARDIA
     Dosage: PRESCRIBED BY CARDIOLOGIST
  3. PRESTIQ [Concomitant]
     Indication: DEPRESSION
     Dosage: 50MG DAILY
  4. PROBIOTICS [Concomitant]
     Indication: PRODUCT USED FOR UNKNOWN INDICATION
  5. MULTIVITAMINS [Concomitant]
     Indication: PRODUCT USED FOR UNKNOWN INDICATION
  6. SUBOXONE [Concomitant]
     Indication: ABDOMINAL PAIN
  7. AMBIEN [Concomitant]
     Indication: INSOMNIA

REACTIONS (5)
  - Gastrointestinal inflammation [Not Recovered/Not Resolved]
  - Injection site bruising [Not Recovered/Not Resolved]
  - Abdominal pain lower [Not Recovered/Not Resolved]
  - Cystitis [Unknown]
  - Pain [Unknown]
